FAERS Safety Report 6625728-4 (Version None)
Quarter: 2010Q1

REPORT INFORMATION
  Report Type: 
  Country: None (occurrence: None)
  Receive Date: 20100310
  Receipt Date: 20100224
  Transmission Date: 20100710
  Serious: Yes (Other)
  Sender: FDA-Public Use
  Company Number: ES-JNJFOC-20100301920

PATIENT
  Age: 77 Year
  Sex: Female

DRUGS (2)
  1. ZALDIAR [Suspect]
     Indication: PAIN
     Route: 048
  2. SINTROM [Interacting]
     Indication: ATRIAL FIBRILLATION
     Route: 048

REACTIONS (4)
  - DRUG INTERACTION [None]
  - GINGIVAL BLEEDING [None]
  - INTERNATIONAL NORMALISED RATIO INCREASED [None]
  - SKIN ULCER HAEMORRHAGE [None]
